FAERS Safety Report 8234381-8 (Version None)
Quarter: 2012Q1

REPORT INFORMATION
  Report Type: 
  Country: None (occurrence: None)
  Receive Date: 20120326
  Receipt Date: 20120319
  Transmission Date: 20120608
  Serious: Yes (Other)
  Sender: FDA-Public Use
  Company Number: US-BAYER-2011-108061

PATIENT
  Age: 33 Year
  Sex: Female
  Weight: 58.05 kg

DRUGS (5)
  1. SEASONALE [Concomitant]
     Dosage: 1 DF, QD
     Route: 048
     Dates: start: 20090917
  2. IBUPROFEN [Concomitant]
     Dosage: UNK
     Dates: start: 19940101, end: 20110701
  3. FLUOXETINE [Concomitant]
     Indication: PREMENSTRUAL SYNDROME
     Dosage: 20 MG, QD 14 DAYS PRIOR TO MENST CYCLE
     Route: 048
     Dates: start: 20080101, end: 20110101
  4. YAZ [Suspect]
     Indication: PREMENSTRUAL SYNDROME
     Dosage: UNK
     Dates: start: 20070601, end: 20091201
  5. SEASONALE [Concomitant]
     Dosage: 1 DF, QD
     Route: 048
     Dates: start: 20091214

REACTIONS (4)
  - PULMONARY EMBOLISM [None]
  - PAIN [None]
  - INJURY [None]
  - MENTAL DISORDER [None]
